FAERS Safety Report 8513311 (Version 7)
Quarter: 2013Q2

REPORT INFORMATION
  Report Type: Spontaneous
  Country: US (occurrence: US)
  Receive Date: 20120416
  Receipt Date: 20130507
  Transmission Date: 20140414
  Serious: Yes (Other)
  Sender: FDA-Public Use
  Company Number: US-PFIZER INC-2012091333

PATIENT
  Age: 79 Year
  Sex: Female
  Weight: 80.27 kg

DRUGS (5)
  1. LIPITOR [Suspect]
     Indication: BLOOD CHOLESTEROL INCREASED
     Dosage: 40 MG, 1X/DAY
     Route: 048
     Dates: start: 2009
  2. ACCUPRIL [Suspect]
     Indication: HYPERTENSION
     Dosage: 20 MG, 2X/DAY
     Route: 048
     Dates: start: 2003
  3. XALATAN [Suspect]
     Indication: GLAUCOMA
     Dosage: 1 GTT, EACH EYE AT BED TIME
     Dates: start: 199711
  4. XALATAN [Suspect]
     Indication: OPEN ANGLE GLAUCOMA
     Dosage: 0.005 UNK, 1 GTT, EACH EYE AT BED TIME
     Route: 047
     Dates: start: 199911
  5. CARDURA [Suspect]
     Dosage: UNK
     Dates: start: 2003

REACTIONS (4)
  - Cardiac valve disease [Unknown]
  - Cardiovascular disorder [Unknown]
  - Nail operation [Unknown]
  - Pain in extremity [Recovered/Resolved]
